FAERS Safety Report 13823681 (Version 1)
Quarter: 2017Q3

REPORT INFORMATION
  Report Type: Spontaneous
  Country: US (occurrence: US)
  Receive Date: 20170802
  Receipt Date: 20170802
  Transmission Date: 20171127
  Serious: No
  Sender: FDA-Public Use
  Company Number: US-BIO PRODUCTS LABORATORY LTD-2024047

PATIENT
  Sex: Female

DRUGS (10)
  1. SUMATRIPTAN SUCCINATE. [Suspect]
     Active Substance: SUMATRIPTAN SUCCINATE
     Dates: end: 20170427
  2. CYMBALTA [Concomitant]
     Active Substance: DULOXETINE HYDROCHLORIDE
  3. XANAX [Concomitant]
     Active Substance: ALPRAZOLAM
  4. PERCOCET [Concomitant]
     Active Substance: ACETAMINOPHEN\OXYCODONE HYDROCHLORIDE
  5. MOBIC [Concomitant]
     Active Substance: MELOXICAM
  6. GENERIC IVIG [Suspect]
     Active Substance: HUMAN IMMUNOGLOBULIN G
     Indication: IMMUNODEFICIENCY COMMON VARIABLE
     Route: 042
     Dates: start: 20141001, end: 20170427
  7. FIORICET [Suspect]
     Active Substance: ACETAMINOPHEN\BUTALBITAL\CAFFEINE
  8. SUMATRIPTAN. [Suspect]
     Active Substance: SUMATRIPTAN
     Dates: end: 20170528
  9. BOTOX [Concomitant]
     Active Substance: ONABOTULINUMTOXINA
  10. SOMA [Concomitant]
     Active Substance: CARISOPRODOL

REACTIONS (5)
  - Migraine [Not Recovered/Not Resolved]
  - Hyperhidrosis [None]
  - Crying [None]
  - Migraine [None]
  - Drug ineffective [None]
